FAERS Safety Report 6409471-2 (Version None)
Quarter: 2009Q4

REPORT INFORMATION
  Report Type: 
  Country: None (occurrence: None)
  Receive Date: 20091016
  Receipt Date: 20091007
  Transmission Date: 20100525
  Serious: Yes (Other)
  Sender: FDA-Public Use
  Company Number: 2009S1000312

PATIENT
  Age: 38 Year
  Sex: Male
  Weight: 79.3795 kg

DRUGS (2)
  1. SORIATANE [Suspect]
     Indication: PSORIASIS
     Dosage: QD; PO
     Route: 048
     Dates: start: 20090801, end: 20090901
  2. FINASTERIDE [Concomitant]

REACTIONS (1)
  - GRAND MAL CONVULSION [None]
